FAERS Safety Report 7422928-0 (Version None)
Quarter: 2011Q2

REPORT INFORMATION
  Report Type: 
  Country: None (occurrence: None)
  Receive Date: 20110419
  Receipt Date: 20110415
  Transmission Date: 20111010
  Serious: Yes (Life-Threatening, Hospitalization)
  Sender: FDA-Public Use
  Company Number: FR-ASTRAZENECA-2011SE21691

PATIENT
  Sex: Male

DRUGS (8)
  1. KARDEGIC [Concomitant]
     Route: 048
  2. STAGID [Concomitant]
     Indication: TYPE 2 DIABETES MELLITUS
     Route: 048
  3. IMOVANE [Concomitant]
     Route: 048
  4. VALIUM [Concomitant]
  5. TENORMIN [Suspect]
     Indication: HYPERTENSION
     Route: 048
     Dates: end: 20110307
  6. ELISOR [Concomitant]
     Indication: HYPERCHOLESTEROLAEMIA
     Route: 048
  7. COAPROVEL [Suspect]
     Indication: HYPERTENSION
     Dosage: 300/12.5 MG DAILY
     Route: 048
     Dates: end: 20110307
  8. LEXOMIL [Concomitant]
     Route: 048

REACTIONS (4)
  - FACE INJURY [None]
  - ATRIOVENTRICULAR BLOCK [None]
  - SYNCOPE [None]
  - CARDIO-RESPIRATORY ARREST [None]
